FAERS Safety Report 25668203 (Version 1)
Quarter: 2025Q3

REPORT INFORMATION
  Report Type: Spontaneous
  Country: US (occurrence: US)
  Receive Date: 20250812
  Receipt Date: 20250812
  Transmission Date: 20251020
  Serious: Yes (Hospitalization)
  Sender: CSL BEHRING
  Company Number: US-BEH-2025215276

PATIENT
  Age: 67 Year
  Sex: Female

DRUGS (9)
  1. ZEMAIRA [Suspect]
     Active Substance: .ALPHA.1-PROTEINASE INHIBITOR HUMAN
     Indication: Nicotine dependence
     Dosage: 60 MG/KG, QW(+/- 10% (DOSE 2940)
     Route: 042
     Dates: start: 202401
  2. AZITHROMYCIN [Concomitant]
     Active Substance: AZITHROMYCIN
  3. SINGULAIR [Concomitant]
     Active Substance: MONTELUKAST SODIUM
  4. ALBUTEROL [Concomitant]
     Active Substance: ALBUTEROL
  5. FOSAMAX [Concomitant]
     Active Substance: ALENDRONATE SODIUM
  6. HYOSCYAMINE [Concomitant]
     Active Substance: HYOSCYAMINE
  7. LEVAQUIN [Concomitant]
     Active Substance: LEVOFLOXACIN
  8. TRELEGY ELLIPTA [Concomitant]
     Active Substance: FLUTICASONE FUROATE\UMECLIDINIUM BROMIDE\VILANTEROL TRIFENATATE
  9. VITAMIN D2 [Concomitant]
     Active Substance: ERGOCALCIFEROL

REACTIONS (2)
  - Hospitalisation [Not Recovered/Not Resolved]
  - Off label use [Unknown]

NARRATIVE: CASE EVENT DATE: 20240101
